FAERS Safety Report 18443947 (Version 7)
Quarter: 2021Q1

REPORT INFORMATION
  Report Type: Spontaneous
  Country: CA (occurrence: CA)
  Receive Date: 20201030
  Receipt Date: 20210204
  Transmission Date: 20210419
  Serious: Yes (Other)
  Sender: FDA-Public Use
  Company Number: CA-CELLTRION INC.-2019CA023981

PATIENT

DRUGS (30)
  1. INFLECTRA [Suspect]
     Active Substance: INFLIXIMAB-DYYB
     Dosage: 485 MG (5MG/KG), Q (EVERY) 0, 2, 6 WEEKS, THEN EVERY 8 WEEKS (Q0)
     Route: 042
     Dates: start: 20190725, end: 20190725
  2. INFLECTRA [Suspect]
     Active Substance: INFLIXIMAB-DYYB
     Dosage: 485 MG (5MG/KG), Q (EVERY) 0, 2, 6 WEEKS, THEN EVERY 8 WEEKS
     Route: 042
     Dates: start: 20191030, end: 20200723
  3. INFLECTRA [Suspect]
     Active Substance: INFLIXIMAB-DYYB
     Dosage: 485 MG, EVERY 6 WEEKS
     Route: 042
     Dates: start: 20201021
  4. IMURAN [Concomitant]
     Active Substance: AZATHIOPRINE
     Dosage: UNK
  5. LOPERAMIDE [Concomitant]
     Active Substance: LOPERAMIDE
     Dosage: UNK
     Route: 065
  6. POTASSIUM [Concomitant]
     Active Substance: POTASSIUM
     Dosage: UNK, DAILY
     Route: 048
  7. INFLECTRA [Suspect]
     Active Substance: INFLIXIMAB-DYYB
     Dosage: 485 MG (5MG/KG), Q (EVERY) 0, 2, 6 WEEKS, THEN EVERY 8 WEEKS
     Route: 042
     Dates: start: 20191111
  8. RISEDRONATE [Concomitant]
     Active Substance: RISEDRONATE SODIUM
     Dosage: UNK
     Route: 065
  9. INFLECTRA [Suspect]
     Active Substance: INFLIXIMAB-DYYB
     Dosage: 485 MG (5MG/KG), Q (EVERY) 0, 2, 6 WEEKS, THEN EVERY 8 WEEKS
     Route: 042
     Dates: start: 20200110
  10. INFLECTRA [Suspect]
     Active Substance: INFLIXIMAB-DYYB
     Dosage: 485 MG, EVERY 6 WEEKS
     Route: 042
     Dates: start: 20201202
  11. INFLECTRA [Suspect]
     Active Substance: INFLIXIMAB-DYYB
     Dosage: 485 MG (5MG/KG), Q (EVERY) 0, 2, 6 WEEKS, THEN EVERY 8 WEEKS (Q6)
     Route: 042
     Dates: start: 20190904, end: 20190904
  12. INFLECTRA [Suspect]
     Active Substance: INFLIXIMAB-DYYB
     Dosage: 485 MG (5MG/KG), Q (EVERY) 0, 2, 6 WEEKS, THEN EVERY 8 WEEKS
     Route: 042
     Dates: start: 20200723
  13. IMODIUM [Concomitant]
     Active Substance: LOPERAMIDE HYDROCHLORIDE
     Dosage: 2 DF, AS NEEDED
     Route: 065
  14. INFLECTRA [Suspect]
     Active Substance: INFLIXIMAB-DYYB
     Dosage: 485 MG (5MG/KG), Q (EVERY) 0, 2, 6 WEEKS, THEN EVERY 8 WEEKS (Q2)
     Route: 042
     Dates: start: 20190808, end: 20190808
  15. INFLECTRA [Suspect]
     Active Substance: INFLIXIMAB-DYYB
     Dosage: 485 MG, EVERY 6 WEEKS
     Route: 042
     Dates: start: 20200911
  16. INFLECTRA [Suspect]
     Active Substance: INFLIXIMAB-DYYB
     Dosage: 485 MG, EVERY 6 WEEKS
     Route: 042
     Dates: start: 20201118
  17. HUMALOG [Concomitant]
     Active Substance: INSULIN LISPRO
     Indication: DIABETES MELLITUS
     Dosage: 4 UNITS PRIOR TO MEALS
     Route: 065
  18. JANUVIA [Concomitant]
     Active Substance: SITAGLIPTIN PHOSPHATE
     Dosage: UNK
     Route: 065
  19. VITAMIN B12 [Concomitant]
     Active Substance: CYANOCOBALAMIN
     Dosage: UNK
     Route: 065
  20. WARFARIN [Concomitant]
     Active Substance: WARFARIN
     Indication: ATRIAL FIBRILLATION
     Dosage: UNK
     Route: 065
  21. INFLECTRA [Suspect]
     Active Substance: INFLIXIMAB-DYYB
     Dosage: 485 MG (5MG/KG), Q (EVERY) 0, 2, 6 WEEKS, THEN EVERY 8 WEEKS
     Route: 042
     Dates: start: 20200318
  22. INFLECTRA [Suspect]
     Active Substance: INFLIXIMAB-DYYB
     Dosage: 485 MG (5MG/KG), Q (EVERY) 0, 2, 6 WEEKS, THEN EVERY 8 WEEKS
     Route: 042
     Dates: start: 20200318
  23. INFLECTRA [Suspect]
     Active Substance: INFLIXIMAB-DYYB
     Dosage: 485 MG (5MG/KG), Q (EVERY) 0, 2, 6 WEEKS, THEN EVERY 8 WEEKS
     Route: 042
     Dates: start: 20200529
  24. INFLECTRA [Suspect]
     Active Substance: INFLIXIMAB-DYYB
     Dosage: 485 MG (5MG/KG), Q (EVERY) 0, 2, 6 WEEKS, THEN EVERY 8 WEEKS
     Route: 042
     Dates: start: 20200529
  25. BETADERM A [Concomitant]
     Dosage: UNK
     Route: 065
  26. ENTOCORT [Concomitant]
     Active Substance: BUDESONIDE
     Dosage: UNK
     Route: 065
  27. TELMISARTAN. [Concomitant]
     Active Substance: TELMISARTAN
     Dosage: UNK
     Route: 065
  28. INFLECTRA [Suspect]
     Active Substance: INFLIXIMAB-DYYB
     Indication: CROHN^S DISEASE
     Dosage: 485 MG (5MG/KG), Q (EVERY) 0, 2, 6 WEEKS, THEN EVERY 8 WEEKS
     Route: 042
     Dates: start: 20190725, end: 20200723
  29. BUDESONIDE. [Concomitant]
     Active Substance: BUDESONIDE
     Dosage: UNK
  30. MAGNESIUM [Concomitant]
     Active Substance: MAGNESIUM
     Dosage: UNK, DAILY
     Route: 048

REACTIONS (29)
  - Cardiac disorder [Unknown]
  - Off label use [Unknown]
  - Oropharyngeal pain [Not Recovered/Not Resolved]
  - Paranasal sinus discomfort [Not Recovered/Not Resolved]
  - Incorrect dose administered [Unknown]
  - Nasal discomfort [Not Recovered/Not Resolved]
  - Chest discomfort [Unknown]
  - Nasopharyngitis [Not Recovered/Not Resolved]
  - Dyspnoea [Not Recovered/Not Resolved]
  - Headache [Unknown]
  - Chills [Unknown]
  - COVID-19 [Not Recovered/Not Resolved]
  - Condition aggravated [Not Recovered/Not Resolved]
  - Inappropriate schedule of product administration [Unknown]
  - Sneezing [Not Recovered/Not Resolved]
  - Sinus congestion [Not Recovered/Not Resolved]
  - Fatigue [Unknown]
  - Increased appetite [Unknown]
  - Diarrhoea [Unknown]
  - Blood pressure increased [Unknown]
  - Renal disorder [Unknown]
  - Intentional product use issue [Unknown]
  - Pyrexia [Recovered/Resolved]
  - Off label use [Unknown]
  - Weight increased [Not Recovered/Not Resolved]
  - Rhinitis allergic [Not Recovered/Not Resolved]
  - Cough [Not Recovered/Not Resolved]
  - Viral infection [Recovered/Resolved]
  - Malaise [Not Recovered/Not Resolved]

NARRATIVE: CASE EVENT DATE: 20190725
